FAERS Safety Report 6047987-1 (Version None)
Quarter: 2009Q1

REPORT INFORMATION
  Report Type: 
  Country: None (occurrence: None)
  Receive Date: 20090123
  Receipt Date: 20090119
  Transmission Date: 20090719
  Serious: Yes (Death)
  Sender: FDA-Public Use
  Company Number: PHHY2009NO02026

PATIENT
  Sex: Male

DRUGS (4)
  1. VOLTAREN [Suspect]
     Dosage: 75 MG X 2 PER DAY
  2. ORENCIA [Suspect]
     Indication: RHEUMATOID ARTHRITIS
     Dosage: 1000 MG X EVERY 4 WEEKS
     Dates: start: 20071129, end: 20081006
  3. FOLIC ACID [Concomitant]
     Dosage: 5 MG, QW
  4. METHOTREXATE [Concomitant]
     Dosage: 20 MG, QW

REACTIONS (8)
  - ANEURYSM RUPTURED [None]
  - COMA [None]
  - CYANOSIS [None]
  - FALL [None]
  - MULTIPLE FRACTURES [None]
  - PELVIC FRACTURE [None]
  - RIB FRACTURE [None]
  - SUBARACHNOID HAEMORRHAGE [None]
